FAERS Safety Report 18009609 (Version 2)
Quarter: 2020Q3

REPORT INFORMATION
  Report Type: Spontaneous
  Country: CH (occurrence: CH)
  Receive Date: 20200710
  Receipt Date: 20200716
  Transmission Date: 20201103
  Serious: Yes (Life-Threatening, Hospitalization, Other)
  Sender: FDA-Public Use
  Company Number: CH-SA-2018SA239607

PATIENT

DRUGS (5)
  1. PREDNISONE. [Suspect]
     Active Substance: PREDNISONE
     Indication: VASCULITIS
     Dosage: 20 MG, QD
     Dates: start: 201812, end: 201812
  2. CARBIMAZOLE [Suspect]
     Active Substance: CARBIMAZOLE
     Indication: BASEDOW^S DISEASE
     Dosage: UNK
     Dates: start: 201808
  3. PREDNISONE. [Suspect]
     Active Substance: PREDNISONE
     Indication: ANTI-NEUTROPHIL CYTOPLASMIC ANTIBODY POSITIVE VASCULITIS
     Dosage: UNK
     Dates: start: 201810
  4. LEMTRADA [Suspect]
     Active Substance: ALEMTUZUMAB
     Indication: RELAPSING-REMITTING MULTIPLE SCLEROSIS
     Dosage: UNK UNK, QCY
     Route: 041
     Dates: start: 201708, end: 2017
  5. PREDNISONE. [Suspect]
     Active Substance: PREDNISONE
     Dosage: 1 MG/KG
     Dates: start: 201812

REACTIONS (18)
  - Conjunctivitis [Recovering/Resolving]
  - Haemoptysis [Recovering/Resolving]
  - Lymphopenia [Unknown]
  - Anti-neutrophil cytoplasmic antibody positive vasculitis [Recovering/Resolving]
  - Auricular chondritis [Recovering/Resolving]
  - Hypersensitivity vasculitis [Recovering/Resolving]
  - Dyspnoea [Recovering/Resolving]
  - Pulmonary alveolar haemorrhage [Recovering/Resolving]
  - Basedow^s disease [Not Recovered/Not Resolved]
  - Haemoptysis [Recovering/Resolving]
  - Blood thyroid stimulating hormone decreased [Not Recovered/Not Resolved]
  - Rebound effect [Recovering/Resolving]
  - Vasculitis [Recovering/Resolving]
  - Pyrexia [Recovering/Resolving]
  - Palpable purpura [Recovering/Resolving]
  - Purpura [Recovering/Resolving]
  - Fatigue [Not Recovered/Not Resolved]
  - Tachycardia [Not Recovered/Not Resolved]

NARRATIVE: CASE EVENT DATE: 201805
